FAERS Safety Report 7548476-5 (Version None)
Quarter: 2011Q2

REPORT INFORMATION
  Report Type: 
  Country: None (occurrence: None)
  Receive Date: 20110615
  Receipt Date: 20110607
  Transmission Date: 20111010
  Serious: Yes (Other)
  Sender: FDA-Public Use
  Company Number: GB-SOLVAY-00211004470

PATIENT
  Age: 43 Year
  Sex: Male

DRUGS (7)
  1. RALTEGRAVIR [Concomitant]
     Indication: HIV INFECTION
     Dosage: DAILY DOSE: 800 MILLIGRAM(S)
     Route: 065
     Dates: start: 20070101
  2. MARAVIROC [Concomitant]
     Indication: HIV INFECTION
     Dosage: DAILY DOSE: 300 MILLIGRAM(S)
     Route: 065
     Dates: start: 20070101
  3. EMTRICITABINE [Concomitant]
     Indication: HIV INFECTION
     Dosage: DAILY DOSE: 200 MILLIGRAM(S)
     Route: 065
     Dates: start: 20070101
  4. RITONAVIR [Interacting]
     Indication: HIV INFECTION
     Dosage: DAILY DOSE: 100 MILLIGRAM(S)
     Route: 048
     Dates: start: 20070101
  5. PERINDOPRIL ERBUMINE [Suspect]
     Indication: HYPERTENSION
     Dosage: DAILY DOSE:  UNKNOWN
     Route: 048
     Dates: start: 20080101, end: 20080101
  6. DARUNAVIR ETHANOLATE [Interacting]
     Indication: HIV INFECTION
     Dosage: DAILY DOSE: 800 MILLIGRAM(S)
     Route: 048
     Dates: start: 20070101
  7. TENOFOVIR DISOPROXIL FUMARATE [Concomitant]
     Indication: HIV INFECTION
     Dosage: DAILY DOSE: 245 MILLIGRAM(S)
     Route: 065
     Dates: start: 20070101

REACTIONS (4)
  - DRUG LEVEL INCREASED [None]
  - DRUG INTERACTION [None]
  - RENAL IMPAIRMENT [None]
  - MIGRAINE [None]
